FAERS Safety Report 4351614-9 (Version None)
Quarter: 2004Q2

REPORT INFORMATION
  Report Type: 
  Country: None (occurrence: None)
  Receive Date: 20040429
  Receipt Date: 20040317
  Transmission Date: 20050107
  Serious: No
  Sender: FDA-Public Use
  Company Number: 2004-114453-NL

PATIENT
  Age: 25 Year
  Sex: Female
  Weight: 59.1 kg

DRUGS (3)
  1. NUVARING [Suspect]
     Indication: AMENORRHOEA
     Dosage: DF DAILY VAGINAL
     Route: 067
     Dates: start: 20031201
  2. NUVARING [Suspect]
     Indication: CONTRACEPTION
     Dosage: DF DAILY VAGINAL
     Route: 067
     Dates: start: 20031201
  3. CLEOCIN [Suspect]
     Indication: VAGINITIS BACTERIAL
     Dosage: DF DAILY VAGINAL
     Route: 067
     Dates: start: 20040216, end: 20040217

REACTIONS (4)
  - DEVICE FAILURE [None]
  - MEDICAL DEVICE DISCOMFORT [None]
  - VAGINAL BURNING SENSATION [None]
  - VAGINITIS BACTERIAL [None]
